FAERS Safety Report 9109439 (Version 4)
Quarter: 2013Q2

REPORT INFORMATION
  Report Type: Spontaneous
  Country: JP (occurrence: JP)
  Receive Date: 20130222
  Receipt Date: 20130404
  Transmission Date: 20140414
  Serious: Yes (Life-Threatening, Other)
  Sender: FDA-Public Use
  Company Number: JP-BAYER-2013-022457

PATIENT
  Age: 78 Year
  Sex: Male
  Weight: 48 kg

DRUGS (6)
  1. BAYASPIRIN [Suspect]
     Indication: MYOCARDIAL INFARCTION
     Dosage: DAILY DOSE 100 MG
     Route: 048
     Dates: start: 200602
  2. PLAVIX [Suspect]
     Indication: CEREBROVASCULAR ACCIDENT PROPHYLAXIS
     Dosage: UNK
     Route: 048
     Dates: start: 200903, end: 20110930
  3. PLAVIX [Suspect]
     Indication: MYOCARDIAL INFARCTION
  4. WARFARIN [Interacting]
     Indication: MYOCARDIAL INFARCTION
     Dosage: 1 MG, UNK
     Route: 048
     Dates: start: 200906, end: 20110923
  5. WARFARIN [Interacting]
     Indication: CEREBROVASCULAR ACCIDENT PROPHYLAXIS
     Dosage: DAILY DOSE 1 MG
     Route: 048
     Dates: start: 200906, end: 20110923
  6. ANPLAG [Concomitant]
     Dosage: DAILY DOSE 200 MG
     Route: 048
     Dates: start: 200602, end: 200903

REACTIONS (3)
  - Biliary fistula [Recovering/Resolving]
  - Post procedural haemorrhage [Recovering/Resolving]
  - Labelled drug-drug interaction medication error [None]
